FAERS Safety Report 4842340-8 (Version None)
Quarter: 2005Q4

REPORT INFORMATION
  Report Type: 
  Country: None (occurrence: None)
  Receive Date: 20051129
  Receipt Date: 20051115
  Transmission Date: 20060501
  Serious: Yes (Other)
  Sender: FDA-Public Use
  Company Number: 2005151385

PATIENT
  Age: 18 Year
  Sex: Female

DRUGS (2)
  1. ZITHROMAX [Suspect]
     Indication: NASOPHARYNGITIS
     Dosage: 500 MG, ORAL
     Route: 048
     Dates: start: 20051013, end: 20051017
  2. COUGH SYRUP (ANTIMONY POTASSIUM TARTRATE, OPIUM TINCTURE, TERPIN HYDRA [Concomitant]

REACTIONS (1)
  - HYPERSENSITIVITY [None]
